FAERS Safety Report 8942683 (Version 1)
Quarter: 2012Q4

REPORT INFORMATION
  Report Type: Report from Study
  Country: CA (occurrence: CA)
  Receive Date: 20121204
  Receipt Date: 20121204
  Transmission Date: 20130627
  Serious: Yes (Hospitalization)
  Sender: FDA-Public Use
  Company Number: CA-UCBSA-072251

PATIENT
  Age: 26 Year
  Sex: Female

DRUGS (4)
  1. CIMZIA [Suspect]
     Indication: RHEUMATOID ARTHRITIS
     Route: 058
     Dates: start: 20120719
  2. CIMZIA [Suspect]
     Indication: RHEUMATOID ARTHRITIS
     Route: 058
     Dates: start: 20120607, end: 20120705
  3. PLAQUENIL [Concomitant]
     Indication: RHEUMATOID ARTHRITIS
     Dosage: 400 MG OD 5/7
     Route: 048
     Dates: start: 20120117
  4. CLONAZEPAM [Concomitant]
     Route: 048

REACTIONS (1)
  - Mental disorder [Not Recovered/Not Resolved]
